FAERS Safety Report 15548087 (Version 7)
Quarter: 2019Q3

REPORT INFORMATION
  Report Type: Report from Study
  Country: US (occurrence: US)
  Receive Date: 20181024
  Receipt Date: 20190710
  Transmission Date: 20191004
  Serious: Yes (Other)
  Sender: FDA-Public Use
  Company Number: PHEH2018US045141

PATIENT
  Sex: Male

DRUGS (1)
  1. ENTRESTO [Suspect]
     Active Substance: SACUBITRIL\VALSARTAN
     Indication: CARDIAC FAILURE
     Dosage: UNK UNK, BID
     Route: 048

REACTIONS (9)
  - Dyspnoea [Unknown]
  - Muscular weakness [Unknown]
  - Muscle atrophy [Unknown]
  - Joint instability [Unknown]
  - Syncope [Unknown]
  - Drug ineffective [Unknown]
  - Asthenia [Unknown]
  - Hypotonia [Unknown]
  - Dizziness [Unknown]
